FAERS Safety Report 15053901 (Version 1)
Quarter: 2018Q2

REPORT INFORMATION
  Report Type: Spontaneous
  Country: FR (occurrence: FR)
  Receive Date: 20180622
  Receipt Date: 20180622
  Transmission Date: 20180711
  Serious: Yes (Other)
  Sender: FDA-Public Use
  Company Number: FR-MYLANLABS-2018M1044566

PATIENT
  Age: 12 Year
  Sex: Female

DRUGS (1)
  1. CALCITONIN SALMON MYLAN [Suspect]
     Active Substance: CALCITONIN SALMON
     Indication: COMPLEX REGIONAL PAIN SYNDROME
     Dosage: 0.5 DF, QD
     Dates: start: 20180606

REACTIONS (6)
  - Decreased appetite [Unknown]
  - Paralysis [Unknown]
  - Nausea [Unknown]
  - Off label use [Unknown]
  - Injection site pain [Unknown]
  - Vomiting [Unknown]

NARRATIVE: CASE EVENT DATE: 20180606
